FAERS Safety Report 7177551-2 (Version None)
Quarter: 2010Q4

REPORT INFORMATION
  Report Type: 
  Country: None (occurrence: None)
  Receive Date: 20101220
  Receipt Date: 20101213
  Transmission Date: 20110411
  Serious: Yes (Hospitalization)
  Sender: FDA-Public Use
  Company Number: US-US-EMD SERONO, INC.-7007678

PATIENT
  Sex: Male
  Weight: 108 kg

DRUGS (2)
  1. REBIF [Suspect]
     Indication: MULTIPLE SCLEROSIS
     Route: 058
     Dates: start: 20080303, end: 20101101
  2. UNSPECIFIED MEDICATIONS [Concomitant]

REACTIONS (7)
  - ARTHRITIS [None]
  - ASTHENIA [None]
  - CELLULITIS [None]
  - CYSTITIS [None]
  - DEPRESSION [None]
  - KIDNEY INFECTION [None]
  - MUSCULAR WEAKNESS [None]
